FAERS Safety Report 8001499-4 (Version None)
Quarter: 2011Q4

REPORT INFORMATION
  Report Type: 
  Country: None (occurrence: None)
  Receive Date: 20111222
  Receipt Date: 20111214
  Transmission Date: 20120403
  Serious: Yes (Hospitalization)
  Sender: FDA-Public Use
  Company Number: JP-JNJFOC-20111200589

PATIENT
  Sex: Female

DRUGS (9)
  1. OLMESARTAN MEDOXOMIL [Concomitant]
     Indication: HYPERTENSION
     Route: 048
     Dates: start: 20110829
  2. REMICADE [Suspect]
     Route: 042
     Dates: start: 20101203
  3. REMICADE [Suspect]
     Route: 042
     Dates: start: 20101207
  4. CANDESARTAN CILEXETIL [Concomitant]
     Route: 048
  5. MARZULENE [Concomitant]
     Route: 048
  6. ATELEC [Concomitant]
     Route: 048
  7. REMICADE [Suspect]
     Indication: PSORIASIS
     Dosage: 7TH INFUSION
     Route: 042
     Dates: start: 20110930
  8. REMICADE [Suspect]
     Route: 042
     Dates: start: 20110304
  9. NORVASC [Concomitant]
     Indication: HYPERTENSION
     Route: 048
     Dates: start: 20110829

REACTIONS (2)
  - CELLULITIS [None]
  - ARTHRITIS [None]
